FAERS Safety Report 4787302-4 (Version None)
Quarter: 2005Q3

REPORT INFORMATION
  Report Type: 
  Country: None (occurrence: None)
  Receive Date: 20050926
  Receipt Date: 20050706
  Transmission Date: 20060218
  Serious: No
  Sender: FDA-Public Use
  Company Number: 215885

PATIENT
  Sex: Male

DRUGS (1)
  1. AVASTIN [Suspect]
     Indication: MULTIPLE MYELOMA
     Dosage: 370 MG,

REACTIONS (1)
  - ACCIDENTAL EXPOSURE [None]
